FAERS Safety Report 24752289 (Version 3)
Quarter: 2025Q1

REPORT INFORMATION
  Report Type: Report from Study
  Country: US (occurrence: US)
  Receive Date: 20241219
  Receipt Date: 20250308
  Transmission Date: 20250409
  Serious: Yes (Other)
  Sender: ABBVIE
  Company Number: US-ABBVIE-6047403

PATIENT
  Age: 58 Year
  Sex: Male
  Weight: 100.69 kg

DRUGS (1)
  1. SKYRIZI [Suspect]
     Active Substance: RISANKIZUMAB-RZAA
     Indication: Psoriasis
     Route: 058
     Dates: start: 202306, end: 20241216

REACTIONS (3)
  - Bedridden [Recovering/Resolving]
  - Weight decreased [Recovering/Resolving]
  - Gastrooesophageal sphincter insufficiency [Recovering/Resolving]

NARRATIVE: CASE EVENT DATE: 20240401
